FAERS Safety Report 6678558-1 (Version None)
Quarter: 2010Q2

REPORT INFORMATION
  Report Type: 
  Country: None (occurrence: None)
  Receive Date: 20100413
  Receipt Date: 20100401
  Transmission Date: 20101027
  Serious: Yes (Death, Hospitalization)
  Sender: FDA-Public Use
  Company Number: CA-JNJFOC-20100401317

PATIENT
  Sex: Male
  Weight: 73 kg

DRUGS (9)
  1. DOXORUBICIN HCL [Suspect]
     Indication: NEOPLASM
     Route: 042
  2. SORAFENIB [Suspect]
     Indication: NEOPLASM
     Route: 048
  3. ZANTAC [Concomitant]
     Indication: GASTROOESOPHAGEAL REFLUX DISEASE
     Route: 048
  4. SENNA [Concomitant]
     Indication: CONSTIPATION
     Route: 048
  5. DOCUSATE [Concomitant]
     Indication: CONSTIPATION
     Route: 048
  6. FISH OIL [Concomitant]
     Indication: NUTRITIONAL SUPPORT
     Route: 048
  7. FOLIC ACID [Concomitant]
     Indication: NUTRITIONAL SUPPORT
     Route: 048
  8. DEXAMETHASONE [Concomitant]
     Indication: PAIN
     Route: 048
  9. NYSTATIN [Concomitant]
     Indication: ORAL CANDIDIASIS
     Route: 048

REACTIONS (3)
  - HAEMOPTYSIS [None]
  - LOSS OF CONSCIOUSNESS [None]
  - NON-SMALL CELL LUNG CANCER [None]
